FAERS Safety Report 13613918 (Version 1)
Quarter: 2017Q2

REPORT INFORMATION
  Report Type: Spontaneous
  Country: US (occurrence: US)
  Receive Date: 20170606
  Receipt Date: 20170606
  Transmission Date: 20170830
  Serious: No
  Sender: FDA-Public Use
  Company Number: US-TEVA-725952ACC

PATIENT
  Sex: Female
  Weight: 61.29 kg

DRUGS (1)
  1. MINOXIDIL TOPICAL SOLUTION MEN [Suspect]
     Active Substance: MINOXIDIL
     Indication: ALOPECIA
     Dosage: SOLUTION
     Route: 061
     Dates: start: 20161015

REACTIONS (4)
  - Headache [Recovered/Resolved]
  - Cyst [Recovered/Resolved]
  - Product use issue [Unknown]
  - Off label use [None]
